FAERS Safety Report 14134662 (Version 3)
Quarter: 2018Q2

REPORT INFORMATION
  Report Type: Spontaneous
  Country: PL (occurrence: PL)
  Receive Date: 20171027
  Receipt Date: 20180411
  Transmission Date: 20180711
  Serious: Yes (Other)
  Sender: FDA-Public Use
  Company Number: PL-INCYTE CORPORATION-2017IN009215

PATIENT

DRUGS (1)
  1. JAKAVI [Suspect]
     Active Substance: RUXOLITINIB
     Indication: PRIMARY MYELOFIBROSIS
     Dosage: UNK
     Route: 065

REACTIONS (4)
  - Pyrexia [Unknown]
  - Tuberculosis [Unknown]
  - Lung infiltration [Unknown]
  - Splenomegaly [Unknown]
